FAERS Safety Report 4561961-3 (Version None)
Quarter: 2005Q1

REPORT INFORMATION
  Report Type: 
  Country: None (occurrence: None)
  Receive Date: 20050118
  Receipt Date: 20040322
  Transmission Date: 20050727
  Serious: Yes (Other)
  Sender: FDA-Public Use
  Company Number: HQWYE048524MAR04

PATIENT
  Sex: Female

DRUGS (1)
  1. PREMPRO [Suspect]
     Indication: MENOPAUSE
     Dosage: VARYING DOSES 0.625MG/2.5 MG TO 0.45MG/ 1.5 MG, ORAL
     Route: 048

REACTIONS (1)
  - ENDOMETRIAL CANCER [None]
